FAERS Safety Report 8903630 (Version 4)
Quarter: 2013Q2

REPORT INFORMATION
  Report Type: Spontaneous
  Country: US (occurrence: US)
  Receive Date: 20121113
  Receipt Date: 20130628
  Transmission Date: 20140414
  Serious: Yes (Disabling, Other)
  Sender: FDA-Public Use
  Company Number: US-009507513-1205USA04381

PATIENT
  Sex: Female
  Weight: 50.79 kg

DRUGS (11)
  1. FOSAMAX [Suspect]
     Indication: OSTEOPOROSIS
     Dosage: 35 MG, UNK
     Route: 048
     Dates: start: 200604, end: 200806
  2. FOSAMAX [Suspect]
     Indication: OSTEOPENIA
     Dosage: 70 UNK, UNK
     Route: 048
  3. ALENDRONATE SODIUM [Suspect]
     Indication: OSTEOPENIA
     Dosage: 35 MG, UNK
     Route: 048
     Dates: start: 200807, end: 200909
  4. ALENDRONATE SODIUM [Suspect]
     Indication: OSTEOPOROSIS
     Dosage: 70 MG, UNK
     Route: 048
     Dates: start: 200910, end: 201005
  5. ACTONEL [Suspect]
     Indication: OSTEOPENIA
     Dosage: 35 MG, UNK
     Route: 048
     Dates: start: 200209, end: 200603
  6. ACTONEL [Suspect]
     Indication: OSTEOPOROSIS
  7. METHOTREXATE [Concomitant]
     Indication: PSORIATIC ARTHROPATHY
     Dosage: UNK, QW
     Dates: start: 2004
  8. SYNTHROID [Concomitant]
     Indication: HYPOTHYROIDISM
     Dosage: UNK
     Dates: start: 2001
  9. AZULFIDINE [Concomitant]
     Indication: RHEUMATOID ARTHRITIS
  10. CALCIUM (UNSPECIFIED) (+) VITAMIN D (UNSPECIFIED) [Concomitant]
     Indication: OSTEOPOROSIS
  11. CALCIUM (UNSPECIFIED) (+) VITAMIN D (UNSPECIFIED) [Concomitant]
     Indication: OSTEOPENIA

REACTIONS (16)
  - Humerus fracture [Unknown]
  - Osteonecrosis of jaw [Unknown]
  - Artificial crown procedure [Unknown]
  - Dental prosthesis placement [Unknown]
  - Dry eye [Not Recovered/Not Resolved]
  - Oral infection [Unknown]
  - Abscess [Unknown]
  - Hypertension [Unknown]
  - Hyperlipidaemia [Unknown]
  - Traumatic fracture [Unknown]
  - Toothache [Unknown]
  - Unevaluable event [Unknown]
  - Fall [Unknown]
  - Atelectasis [Unknown]
  - Scar [Unknown]
  - Osteoarthritis [Unknown]
